FAERS Safety Report 8773596 (Version 1)
Quarter: 2012Q4

REPORT INFORMATION
  Report Type: 
  Country: JP (occurrence: JP)
  Receive Date: 20120907
  Receipt Date: 20120907
  Transmission Date: 20130627
  Serious: Yes (Other)
  Sender: FDA-Public Use
  Company Number: PHHY2012JP077801

PATIENT
  Age: 59 Year
  Sex: Male

DRUGS (3)
  1. NEORAL [Suspect]
     Indication: RENAL TRANSPLANT
     Route: 048
  2. CELLCEPT [Suspect]
     Route: 048
  3. PREDONINE [Suspect]
     Route: 048

REACTIONS (4)
  - Pulmonary calcification [Unknown]
  - Cytomegalovirus infection [Unknown]
  - Cough [Unknown]
  - Pyrexia [Unknown]
